FAERS Safety Report 10756024 (Version 1)
Quarter: 2015Q1

REPORT INFORMATION
  Report Type: Spontaneous
  Country: TW (occurrence: TW)
  Receive Date: 20150202
  Receipt Date: 20150202
  Transmission Date: 20150721
  Serious: Yes (Hospitalization)
  Sender: FDA-Public Use
  Company Number: TW-MYLANLABS-2015M1002661

PATIENT

DRUGS (3)
  1. DIPHENHYDRAMINE [Suspect]
     Active Substance: DIPHENHYDRAMINE
     Indication: URTICARIA
     Route: 030
  2. DIPHENHYDRAMINE [Suspect]
     Active Substance: DIPHENHYDRAMINE
     Indication: INSOMNIA
     Dosage: 30MG AT NIGHT INITIALLY; THE FREQUENCY AND THE AMOUNT INCREASED EVERY FEW DAYS
     Route: 030
  3. DIPHENHYDRAMINE [Suspect]
     Active Substance: DIPHENHYDRAMINE
     Dosage: CRAVING FOR UP TO 450 MG/DAY
     Route: 030

REACTIONS (4)
  - Electrocardiogram QT prolonged [Recovered/Resolved]
  - Drug dependence [Recovered/Resolved]
  - Drug withdrawal syndrome [Recovered/Resolved]
  - Muscle necrosis [Recovering/Resolving]
